FAERS Safety Report 15626765 (Version 2)
Quarter: 2019Q3

REPORT INFORMATION
  Report Type: Spontaneous
  Country: JP (occurrence: JP)
  Receive Date: 20181116
  Receipt Date: 20190822
  Transmission Date: 20191004
  Serious: Yes (Hospitalization)
  Sender: FDA-Public Use
  Company Number: JP-SA-2018SA311102

PATIENT
  Sex: Male

DRUGS (2)
  1. ELPLAT [Suspect]
     Active Substance: OXALIPLATIN
     Indication: COLON CANCER
     Dosage: UNK UNK, QD
     Route: 041
  2. CAPECITABINE. [Suspect]
     Active Substance: CAPECITABINE
     Indication: COLON CANCER
     Dosage: UNK UNK, BID
     Route: 048

REACTIONS (6)
  - Oedema peripheral [Recovering/Resolving]
  - Hepatic atrophy [Recovering/Resolving]
  - Diarrhoea [Recovered/Resolved]
  - Hypoalbuminaemia [Recovering/Resolving]
  - Cholecystitis [Unknown]
  - Ascites [Recovering/Resolving]
